FAERS Safety Report 6375863-3 (Version None)
Quarter: 2009Q3

REPORT INFORMATION
  Report Type: 
  Country: None (occurrence: None)
  Receive Date: 20090924
  Receipt Date: 20090916
  Transmission Date: 20100115
  Serious: Yes (Hospitalization, Other)
  Sender: FDA-Public Use
  Company Number: FI-JNJFOC-20090803455

PATIENT
  Age: 8 Year
  Sex: Female
  Weight: 25 kg

DRUGS (2)
  1. REMICADE [Suspect]
     Indication: IRITIS
     Route: 042
     Dates: start: 20050101, end: 20090727
  2. REMICADE [Suspect]
     Indication: JUVENILE ARTHRITIS
     Route: 042
     Dates: start: 20050101, end: 20090727

REACTIONS (3)
  - DERMATITIS PSORIASIFORM [None]
  - PERITONSILLAR ABSCESS [None]
  - PERTUSSIS [None]
